FAERS Safety Report 5509925-7 (Version None)
Quarter: 2007Q4

REPORT INFORMATION
  Report Type: 
  Country: None (occurrence: None)
  Receive Date: 20071107
  Receipt Date: 20071107
  Transmission Date: 20080405
  Serious: Yes (Death)
  Sender: FDA-Public Use
  Company Number: None

PATIENT
  Sex: Male
  Weight: 78.0187 kg

DRUGS (2)
  1. GEMZAR [Suspect]
     Indication: PANCREATIC CARCINOMA METASTATIC
     Dosage: 1000MG/M2 EVERY OTHER WEEK INTRAVENOUS DRIP
     Route: 041
     Dates: start: 20070517, end: 20071009
  2. BEVACIZUMAB GENENTECH [Suspect]
     Indication: PANCREATIC CARCINOMA METASTATIC
     Dosage: 10MG/KG EVERY OTHER WEEK INTRAVENOUS DRIP
     Route: 041
     Dates: start: 20070926, end: 20071009

REACTIONS (6)
  - CEREBRAL VENTRICLE DILATATION [None]
  - GASTROINTESTINAL HAEMORRHAGE [None]
  - MALIGNANT NEOPLASM PROGRESSION [None]
  - MENTAL STATUS CHANGES [None]
  - METASTASES TO GASTROINTESTINAL TRACT [None]
  - PANCREATIC CARCINOMA [None]
